FAERS Safety Report 5337162-8 (Version None)
Quarter: 2007Q2

REPORT INFORMATION
  Report Type: 
  Country: None (occurrence: None)
  Receive Date: 20070529
  Receipt Date: 20070521
  Transmission Date: 20071010
  Serious: Yes (Other)
  Sender: FDA-Public Use
  Company Number: IE-PFIZER INC-2007030242

PATIENT
  Sex: Female

DRUGS (1)
  1. ISTIN [Suspect]
     Route: 048

REACTIONS (2)
  - JAUNDICE [None]
  - NEOPLASM MALIGNANT [None]
